FAERS Safety Report 5325161-1 (Version None)
Quarter: 2007Q2

REPORT INFORMATION
  Report Type: 
  Country: None (occurrence: None)
  Receive Date: 20070515
  Receipt Date: 20070510
  Transmission Date: 20071010
  Serious: Yes (Disabling)
  Sender: FDA-Public Use
  Company Number: A0637431A

PATIENT
  Age: 46 Year
  Sex: Female
  Weight: 56.4 kg

DRUGS (1)
  1. PAXIL CR [Suspect]
     Indication: DRUG USE FOR UNKNOWN INDICATION
     Dosage: 12.5MG PER DAY
     Route: 048
     Dates: start: 20061201, end: 20070115

REACTIONS (7)
  - AGGRESSION [None]
  - CRYING [None]
  - DRUG INEFFECTIVE [None]
  - HEADACHE [None]
  - MOOD SWINGS [None]
  - PAIN [None]
  - PHARMACEUTICAL PRODUCT COMPLAINT [None]
